FAERS Safety Report 13014865 (Version 5)
Quarter: 2020Q3

REPORT INFORMATION
  Report Type: Spontaneous
  Country: FR (occurrence: FR)
  Receive Date: 20161209
  Receipt Date: 20200806
  Transmission Date: 20201102
  Serious: Yes (Death, Life-Threatening, Hospitalization, Other)
  Sender: FDA-Public Use
  Company Number: PHHY2016FR165138

PATIENT
  Age: 63 Year
  Sex: Female

DRUGS (10)
  1. LYSANXIA [Suspect]
     Active Substance: PRAZEPAM
     Indication: COMPLETED SUICIDE
     Dosage: 420 MG,1X,42 TABLETS
     Route: 048
  2. CITALOPRAM [Suspect]
     Active Substance: CITALOPRAM HYDROBROMIDE
     Indication: COMPLETED SUICIDE
     Dosage: UNK
     Route: 065
  3. SEVIKAR [Suspect]
     Active Substance: AMLODIPINE BESYLATE\OLMESARTAN MEDOXOMIL
     Indication: COMPLETED SUICIDE
     Dosage: 129 DF, 129 TABLETS,1.29 G OF AMLODIPINE AND 5.16 G OF OLMESARTAN, TOTAL
     Route: 048
  4. ATARAX [Suspect]
     Active Substance: HYDROXYZINE HYDROCHLORIDE
     Indication: COMPLETED SUICIDE
     Dosage: 700 MG,1X, 28 TABLETS, TOTAL
     Route: 048
  5. AMLODIPINE [Suspect]
     Active Substance: AMLODIPINE BESYLATE
     Indication: PRODUCT USED FOR UNKNOWN INDICATION
     Dosage: UNK, UNK, UNK
     Route: 065
  6. SEROPLEX [Suspect]
     Active Substance: ESCITALOPRAM OXALATE
     Indication: COMPLETED SUICIDE
     Dosage: 280 MG,TOTAL
     Route: 048
  7. OLMESARTAN MEDOXOMIL. [Suspect]
     Active Substance: OLMESARTAN MEDOXOMIL
     Indication: PRODUCT USED FOR UNKNOWN INDICATION
     Dosage: 129 TABLETS, 1.29 G OF AMLODIPINE AND 5.16 G OF OLMESARTAN
     Route: 048
  8. ZOLPIDEM [Suspect]
     Active Substance: ZOLPIDEM TARTRATE
     Indication: COMPLETED SUICIDE
     Dosage: UNK, UNK, UNK
     Route: 065
  9. SEVIKAR [Suspect]
     Active Substance: AMLODIPINE BESYLATE\OLMESARTAN MEDOXOMIL
     Dosage: 6.45 G,1X
     Route: 048
  10. NORDIAZEPAM [Suspect]
     Active Substance: NORDAZEPAM
     Indication: COMPLETED SUICIDE
     Dosage: UNK UNK, 1X
     Route: 065

REACTIONS (25)
  - Cardiogenic shock [Fatal]
  - Completed suicide [Fatal]
  - Intentional overdose [Fatal]
  - Overdose [Fatal]
  - Bezoar [Recovered/Resolved]
  - Gastrointestinal necrosis [Unknown]
  - Intestinal ischaemia [Unknown]
  - Multiple organ dysfunction syndrome [Fatal]
  - Toxicity to various agents [Fatal]
  - Hepatic failure [Fatal]
  - Gastrointestinal ischaemia [Fatal]
  - Haemodynamic instability [Fatal]
  - Anuria [Unknown]
  - Skin necrosis [Unknown]
  - Blood bicarbonate decreased [Fatal]
  - Vasoplegia syndrome [Unknown]
  - Heart rate decreased [Fatal]
  - Shock [Fatal]
  - Acute kidney injury [Fatal]
  - Metabolic acidosis [Fatal]
  - Acute hepatic failure [Fatal]
  - Hyperlactacidaemia [Unknown]
  - Coma [Unknown]
  - Blood pressure decreased [Fatal]
  - Drug level increased [Fatal]
